FAERS Safety Report 10378301 (Version 1)
Quarter: 2014Q3

REPORT INFORMATION
  Report Type: Spontaneous
  Country: US (occurrence: US)
  Receive Date: 20140812
  Receipt Date: 20140812
  Transmission Date: 20150326
  Serious: No
  Sender: FDA-Public Use
  Company Number: US-PFIZER INC-2014222518

PATIENT
  Age: 49 Year
  Sex: Female
  Weight: 85.26 kg

DRUGS (4)
  1. TIKOSYN [Suspect]
     Active Substance: DOFETILIDE
     Dosage: UNK, 1X/DAY
     Route: 048
     Dates: start: 201408
  2. LISINOPRIL. [Concomitant]
     Active Substance: LISINOPRIL
     Indication: HYPERTENSION
     Dosage: UNK
     Dates: start: 20140724
  3. METOPROLOL [Concomitant]
     Active Substance: METOPROLOL
     Indication: HYPERTENSION
     Dosage: 100 MG, UNK
     Dates: start: 1997
  4. TIKOSYN [Suspect]
     Active Substance: DOFETILIDE
     Indication: VENTRICULAR EXTRASYSTOLES
     Dosage: UNK, 2X/DAY
     Route: 048
     Dates: start: 20140724, end: 201408

REACTIONS (1)
  - Sneezing [Not Recovered/Not Resolved]

NARRATIVE: CASE EVENT DATE: 201408
